FAERS Safety Report 7824724-9 (Version None)
Quarter: 2011Q4

REPORT INFORMATION
  Report Type: 
  Country: None (occurrence: None)
  Receive Date: 20111019
  Receipt Date: 20111013
  Transmission Date: 20120403
  Serious: Yes (Other)
  Sender: FDA-Public Use
  Company Number: PHEH2011US05693

PATIENT
  Sex: Female

DRUGS (6)
  1. RECLAST [Suspect]
     Indication: OSTEOPOROSIS
     Route: 042
     Dates: start: 20110411
  2. PREDNISONE [Concomitant]
     Indication: INFLUENZA
     Dosage: UNK UKN, UNK
  3. VICODIN [Concomitant]
  4. VITAMIN D [Concomitant]
     Dosage: UNK UKN, UNK
  5. AUGMENTIN '125' [Concomitant]
  6. CALCIUM CARBONATE [Concomitant]
     Dosage: UNK UKN, UNK

REACTIONS (17)
  - GAIT DISTURBANCE [None]
  - PNEUMONIA [None]
  - BRONCHITIS [None]
  - NAUSEA [None]
  - MYALGIA [None]
  - INFLUENZA [None]
  - ARTHRALGIA [None]
  - PAIN IN EXTREMITY [None]
  - COUGH [None]
  - CHILLS [None]
  - PYREXIA [None]
  - ASTHENIA [None]
  - PAIN [None]
  - DRUG INEFFECTIVE [None]
  - TACHYCARDIA [None]
  - PARAESTHESIA [None]
  - BACK PAIN [None]
